FAERS Safety Report 4780995-7 (Version None)
Quarter: 2005Q3

REPORT INFORMATION
  Report Type: 
  Country: None (occurrence: None)
  Receive Date: 20050926
  Receipt Date: 20050913
  Transmission Date: 20060218
  Serious: Yes (Other)
  Sender: FDA-Public Use
  Company Number: 217707

PATIENT
  Age: 36 Year
  Sex: Female
  Weight: 57 kg

DRUGS (10)
  1. RITUXAN [Suspect]
     Indication: NON-HODGKIN'S LYMPHOMA
     Dosage: 585 MG, INTRAVENOUS
     Route: 042
     Dates: start: 20041201
  2. IFOSFAMIDE [Suspect]
     Indication: NON-HODGKIN'S LYMPHOMA
     Dosage: 1870 MG, INTRAVENOUS
     Route: 042
     Dates: start: 20041202
  3. PARAPLATIN [Suspect]
     Indication: NON-HODGKIN'S LYMPHOMA
     Dosage: 624 MG, INTRAVENOUS
     Route: 042
     Dates: start: 20041202
  4. VEPESID [Suspect]
     Indication: NON-HODGKIN'S LYMPHOMA
     Dosage: 156 MG, INTRAVENOUS
     Route: 042
     Dates: start: 20041202
  5. IBRUFEN (IBUPOROFEN) [Concomitant]
  6. POLARAMINE [Concomitant]
  7. NEUTROGIN (LENOGRASTIM) [Concomitant]
  8. MAGNESIUM OXIDE (MAGNESIUM OXIDE) [Concomitant]
  9. PURSENNID (SENNOSIDES) [Concomitant]
  10. LEUPLIN (LEUPROLIDE ACETATE) [Concomitant]

REACTIONS (13)
  - ALANINE AMINOTRANSFERASE INCREASED [None]
  - ASPARTATE AMINOTRANSFERASE INCREASED [None]
  - DIZZINESS [None]
  - GAMMA-GLUTAMYLTRANSFERASE INCREASED [None]
  - HAEMOGLOBIN DECREASED [None]
  - HEADACHE [None]
  - INFECTION [None]
  - NAUSEA [None]
  - NEUTROPHIL COUNT DECREASED [None]
  - PLATELET COUNT DECREASED [None]
  - POST PROCEDURAL COMPLICATION [None]
  - VOMITING [None]
  - WHITE BLOOD CELL COUNT DECREASED [None]
